FAERS Safety Report 12165328 (Version 2)
Quarter: 2016Q2

REPORT INFORMATION
  Report Type: Report from Study
  Country: IT (occurrence: IT)
  Receive Date: 20160309
  Receipt Date: 20160419
  Transmission Date: 20160815
  Serious: Yes (Hospitalization, Disabling, Other)
  Sender: FDA-Public Use
  Company Number: PHHY2016IT011886

PATIENT
  Age: 53 Year
  Sex: Female
  Weight: 52.1 kg

DRUGS (5)
  1. OLMESARTAN [Concomitant]
     Active Substance: OLMESARTAN
     Indication: HYPERTENSION
     Route: 065
  2. BIVIS [Concomitant]
     Active Substance: AMLODIPINE BESYLATE\OLMESARTAN MEDOXOMIL
     Indication: HYPERTENSION
     Dosage: 20 MG/5 MG, UNK
     Route: 065
     Dates: start: 201503
  3. EVEROLIMUS [Suspect]
     Active Substance: EVEROLIMUS
     Indication: LYMPHANGIOLEIOMYOMATOSIS
     Dosage: 5 MG, QD
     Route: 048
     Dates: start: 20150129, end: 20151111
  4. AMLODIPINE [Concomitant]
     Active Substance: AMLODIPINE BESYLATE
     Indication: HYPERTENSION
     Route: 065
  5. EVEROLIMUS [Suspect]
     Active Substance: EVEROLIMUS
     Indication: ANGIOMYOLIPOMA
     Dosage: 5 MG, UNK
     Route: 048
     Dates: start: 20151221, end: 20160109

REACTIONS (9)
  - Metastases to bone [Not Recovered/Not Resolved]
  - Musculoskeletal pain [Not Recovered/Not Resolved]
  - Respiratory distress [Unknown]
  - Dyspnoea [Not Recovered/Not Resolved]
  - Pneumonitis [Unknown]
  - Non-small cell lung cancer [Not Recovered/Not Resolved]
  - Pneumonia [Not Recovered/Not Resolved]
  - Metastases to liver [Not Recovered/Not Resolved]
  - Inflammatory marker increased [Unknown]

NARRATIVE: CASE EVENT DATE: 201512
